FAERS Safety Report 9571285 (Version 4)
Quarter: 2013Q4

REPORT INFORMATION
  Report Type: Report from Study
  Country: JP (occurrence: JP)
  Receive Date: 20131001
  Receipt Date: 20131204
  Transmission Date: 20140711
  Serious: Yes (Death, Hospitalization)
  Sender: FDA-Public Use
  Company Number: JP-ASTELLAS-2013JP008655

PATIENT
  Age: 75 Year
  Sex: Female
  Weight: 51 kg

DRUGS (5)
  1. TACROLIMUS CAPSULES [Suspect]
     Indication: RHEUMATOID ARTHRITIS
     Dosage: 1.5 MG, UID/QD
     Route: 048
     Dates: start: 20130221, end: 20130701
  2. REMICADE [Suspect]
     Indication: RHEUMATOID ARTHRITIS
     Dosage: 6 MG/KG, UNKNOWN/D
     Route: 065
     Dates: start: 20060209, end: 2013
  3. METHOTREXATE [Suspect]
     Indication: RHEUMATOID ARTHRITIS
     Dosage: 4 MG, WEEKLY
     Route: 048
     Dates: end: 20130701
  4. PASIL [Concomitant]
     Indication: URINARY TRACT INFECTION
     Dosage: UNK
     Route: 065
     Dates: end: 201307
  5. MEROPENEM [Concomitant]
     Indication: URINARY TRACT INFECTION
     Dosage: UNK
     Route: 065
     Dates: start: 201307

REACTIONS (3)
  - Stress cardiomyopathy [Fatal]
  - Cardiac failure [Fatal]
  - Urinary tract infection [Recovering/Resolving]
